FAERS Safety Report 23344387 (Version 1)
Quarter: 2023Q4

REPORT INFORMATION
  Report Type: Report from Study
  Country: GR (occurrence: GR)
  Receive Date: 20231228
  Receipt Date: 20231228
  Transmission Date: 20240110
  Serious: Yes (Hospitalization)
  Sender: FDA-Public Use
  Company Number: GR-ABBVIE-5559650

PATIENT
  Age: 75 Year
  Sex: Female

DRUGS (20)
  1. CARBIDOPA\LEVODOPA [Suspect]
     Active Substance: CARBIDOPA\LEVODOPA
     Indication: Parkinson^s disease
     Dosage: MORNING DOSE: 8.6ML; CONTINUOUS RATE: 1.7ML/H; EXTRA DOSE: 1.5ML
     Route: 050
     Dates: start: 20210622
  2. CARBIDOPA\LEVODOPA [Suspect]
     Active Substance: CARBIDOPA\LEVODOPA
  3. ATORVASTATIN CALCIUM [Concomitant]
     Active Substance: ATORVASTATIN CALCIUM
     Indication: Hypercholesterolaemia
     Dosage: FREQUENCY TEXT: 1X1 DAYS (AT NIGHT)
  4. LYRICA [Concomitant]
     Active Substance: PREGABALIN
     Indication: Parkinson^s disease
  5. ENLIFT [Concomitant]
     Indication: Depression
     Dosage: FREQUENCY TEXT: 1X1 DAYS (AT NIGHT)
  6. ATROVENT [Concomitant]
     Active Substance: IPRATROPIUM BROMIDE
     Indication: Asthma
  7. ASARKIN [Concomitant]
     Indication: Product used for unknown indication
  8. QUETIAPINE [Concomitant]
     Active Substance: QUETIAPINE
     Indication: Product used for unknown indication
  9. TOVIAZ [Concomitant]
     Active Substance: FESOTERODINE FUMARATE
     Indication: Urinary incontinence
     Dosage: FREQUENCY TEXT: 1X1 DAYS (IN THE NOON)
  10. FLUTICASONE PROPIONATE [Concomitant]
     Active Substance: FLUTICASONE PROPIONATE
     Indication: Asthma
  11. SYMMETREL [Concomitant]
     Active Substance: AMANTADINE HYDROCHLORIDE
     Indication: Parkinson^s disease
  12. BROMAZEPAM [Concomitant]
     Active Substance: BROMAZEPAM
     Indication: Product used for unknown indication
     Dosage: FREQUENCY TEXT: 1X1 DAYS (AT NIGHT WHEN NECESSARY)
  13. ALLOPURINOL [Concomitant]
     Active Substance: ALLOPURINOL
     Indication: Product used for unknown indication
     Dosage: FREQUENCY TEXT: 1X1 DAYS (IN THE NOON)
  14. PRAMIPEXOLE [Concomitant]
     Active Substance: PRAMIPEXOLE
     Indication: Parkinson^s disease
     Dosage: UNIT DOSE: 1.05 MG
  15. Hydroflux [Concomitant]
     Indication: Product used for unknown indication
     Dosage: FORM STRENGTH: 40 MG?FREQUENCY TEXT: 1X1 DAYS (IN THE MORNING)
  16. LEVOTHYROXINE [Concomitant]
     Active Substance: LEVOTHYROXINE
     Indication: Hypothyroidism
  17. BETAHISTINE [Concomitant]
     Active Substance: BETAHISTINE
     Indication: Vertigo
     Dosage: FREQUENCY TEXT: 1X1 DAYS (IN THE MORNING)
  18. STALEVO [Concomitant]
     Active Substance: CARBIDOPA\ENTACAPONE\LEVODOPA
     Indication: Parkinson^s disease
     Dosage: UNIT DOSE: (100+25+100)MG, FORM STRENGTH: (200+50+200)MG?FREQUENCY TEXT: 1X1 AT NIGHT AFTER THE P...
  19. XANAX [Concomitant]
     Active Substance: ALPRAZOLAM
     Indication: Product used for unknown indication
     Dosage: UNIT DOSE: 0.5 MG
  20. Valmane [Concomitant]
     Indication: Insomnia

REACTIONS (4)
  - Bronchitis [Recovered/Resolved]
  - Erythema [Not Recovered/Not Resolved]
  - Aspiration [Unknown]
  - Pruritus [Not Recovered/Not Resolved]

NARRATIVE: CASE EVENT DATE: 20231219
